FAERS Safety Report 16181082 (Version 1)
Quarter: 2019Q2

REPORT INFORMATION
  Report Type: Spontaneous
  Country: US (occurrence: US)
  Receive Date: 20190410
  Receipt Date: 20190410
  Transmission Date: 20190711
  Serious: Yes (Hospitalization)
  Sender: FDA-Public Use
  Company Number: PHHY2019US078927

PATIENT
  Age: 47 Year
  Sex: Male

DRUGS (5)
  1. CLOZAPINE. [Interacting]
     Active Substance: CLOZAPINE
     Indication: SCHIZOAFFECTIVE DISORDER
     Route: 048
  2. LORAZEPAM. [Interacting]
     Active Substance: LORAZEPAM
     Indication: SCHIZOAFFECTIVE DISORDER
     Route: 065
  3. DOXEPIN [Interacting]
     Active Substance: DOXEPIN
     Indication: SCHIZOAFFECTIVE DISORDER
     Route: 065
  4. RISPERIDONE. [Suspect]
     Active Substance: RISPERIDONE
     Indication: SCHIZOAFFECTIVE DISORDER
     Dosage: 37.5 MG, Q2MO
     Route: 065
  5. RISPERIDONE. [Interacting]
     Active Substance: RISPERIDONE
     Indication: PARANOIA

REACTIONS (10)
  - Sedation [Unknown]
  - Extrapyramidal disorder [Unknown]
  - Product use in unapproved indication [Unknown]
  - Hostility [Unknown]
  - Electrocardiogram QT prolonged [Unknown]
  - Agitation [Unknown]
  - Electrolyte imbalance [Unknown]
  - Drug interaction [Unknown]
  - Loss of consciousness [Unknown]
  - Overdose [Unknown]
